FAERS Safety Report 9417788 (Version 2)
Quarter: 2013Q3

REPORT INFORMATION
  Report Type: Other
  Country: DE (occurrence: DE)
  Receive Date: 20130724
  Receipt Date: 20130730
  Transmission Date: 20140515
  Serious: Yes (Death, Life-Threatening, Hospitalization)
  Sender: FDA-Public Use
  Company Number: DE-BRISTOL-MYERS SQUIBB COMPANY-19112135

PATIENT
  Age: 78 Year
  Sex: Female

DRUGS (8)
  1. METFORMIN HCL [Suspect]
     Indication: TYPE 2 DIABETES MELLITUS
     Route: 048
  2. ISOSORBIDE DINITRATE [Concomitant]
     Indication: HYPERTENSION
  3. ISOSORBIDE DINITRATE [Concomitant]
     Indication: CORONARY ARTERY DISEASE
  4. RAMIPRIL [Concomitant]
     Indication: HYPERTENSION
  5. RAMIPRIL [Concomitant]
     Indication: CORONARY ARTERY DISEASE
  6. VERAPAMIL [Concomitant]
     Indication: HYPERTENSION
  7. VERAPAMIL [Concomitant]
     Indication: CORONARY ARTERY DISEASE
  8. PANTOPRAZOLE [Concomitant]
     Indication: GASTRIC ULCER

REACTIONS (6)
  - Circulatory collapse [Fatal]
  - Organ failure [Fatal]
  - Overdose [Fatal]
  - Lactic acidosis [Fatal]
  - Urine output decreased [Unknown]
  - Blood urine present [Unknown]
